FAERS Safety Report 4299148-4 (Version None)
Quarter: 2004Q1

REPORT INFORMATION
  Report Type: 
  Country: None (occurrence: None)
  Receive Date: 20040217
  Receipt Date: 20040204
  Transmission Date: 20041129
  Serious: Yes (Life-Threatening, Disabling)
  Sender: FDA-Public Use
  Company Number: 2004196151JP

PATIENT
  Age: 33 Year
  Sex: Female

DRUGS (2)
  1. EPIRUBICIN [Suspect]
     Indication: RENAL CELL CARCINOMA STAGE UNSPECIFIED
     Dosage: 90 MG, INTRA-ATERIAL
     Route: 013
     Dates: start: 20040120
  2. LIPIDOL ULTRA-FLUID (ETHIODIZED OIL) [Suspect]
     Indication: RENAL CELL CARCINOMA STAGE UNSPECIFIED
     Dosage: INTER-ARTERIAL
     Route: 013
     Dates: start: 20040120

REACTIONS (4)
  - CEREBRAL INFARCTION [None]
  - PULMONARY OEDEMA [None]
  - RENAL DISORDER [None]
  - SWELLING [None]
